FAERS Safety Report 8378306-3 (Version None)
Quarter: 2012Q2

REPORT INFORMATION
  Report Type: 
  Country: None (occurrence: None)
  Receive Date: 20120522
  Receipt Date: 20120521
  Transmission Date: 20120825
  Serious: Yes (Hospitalization, Other)
  Sender: FDA-Public Use
  Company Number: US-ROCHE-1070746

PATIENT
  Sex: Male
  Weight: 65.376 kg

DRUGS (4)
  1. DULERA [Concomitant]
  2. OMALIZUMAB [Suspect]
     Indication: ASTHMA
     Route: 058
     Dates: start: 20100201, end: 20120201
  3. ALBUTEROL [Concomitant]
  4. ASMANEX TWISTHALER [Concomitant]

REACTIONS (2)
  - APPENDICECTOMY [None]
  - SINUS OPERATION [None]
